FAERS Safety Report 20977504 (Version 1)
Quarter: 2022Q2

REPORT INFORMATION
  Report Type: Spontaneous
  Country: CN (occurrence: CN)
  Receive Date: 20220618
  Receipt Date: 20220618
  Transmission Date: 20220721
  Serious: Yes (Death, Other)
  Sender: FDA-Public Use
  Company Number: CN-009507513-2206CHN002740

PATIENT
  Age: 64 Year
  Sex: Male

DRUGS (13)
  1. IMIPENEM AND CILASTATIN [Suspect]
     Active Substance: CILASTATIN SODIUM\IMIPENEM
     Indication: Anti-infective therapy
     Dosage: 1 GRAM, Q8H
     Route: 042
     Dates: start: 20201226, end: 20210105
  2. MOXIFLOXACIN [Suspect]
     Active Substance: MOXIFLOXACIN
     Indication: Anti-infective therapy
     Dosage: UNK
     Dates: start: 20201218, end: 20201225
  3. MOXIFLOXACIN [Suspect]
     Active Substance: MOXIFLOXACIN
     Dosage: 0.4 GRAM
     Route: 042
     Dates: start: 20201226, end: 20210105
  4. GANCICLOVIR [Suspect]
     Active Substance: GANCICLOVIR
     Indication: Antiviral treatment
     Dosage: UNK
     Dates: start: 20201218, end: 20201225
  5. GANCICLOVIR [Suspect]
     Active Substance: GANCICLOVIR
     Dosage: 0.35 GRAM, Q12H
     Route: 042
     Dates: start: 20201227, end: 20210104
  6. VANCOMYCIN [Suspect]
     Active Substance: VANCOMYCIN
     Indication: Anti-infective therapy
     Dosage: 0.5 GRAM, Q12H
     Route: 042
     Dates: start: 20210105, end: 20210106
  7. PIPERACILLIN SODIUM\TAZOBACTAM SODIUM [Suspect]
     Active Substance: PIPERACILLIN SODIUM\TAZOBACTAM SODIUM
     Indication: Anti-infective therapy
     Dosage: 4.5 GRAM, Q8H
     Route: 042
     Dates: start: 20210105, end: 20210106
  8. MICAFUNGIN [Suspect]
     Active Substance: MICAFUNGIN
     Indication: Anti-infective therapy
     Dosage: 1 GRAM, Q12H
     Route: 042
     Dates: start: 20210106
  9. METHYLPREDNISOLONE [Suspect]
     Active Substance: METHYLPREDNISOLONE
     Indication: Adrenocortical steroid therapy
     Dosage: 40 MILLIGRAM, Q12H
     Route: 042
     Dates: start: 20201228, end: 20210106
  10. OSELTAMIVIR [Suspect]
     Active Substance: OSELTAMIVIR
     Indication: Antiviral treatment
     Dosage: 75 MILLIGRAM, BID
     Route: 048
     Dates: start: 20201228, end: 20210104
  11. UMIFENOVIR [Suspect]
     Active Substance: UMIFENOVIR
     Indication: Antiviral treatment
     Dosage: THREE 0.2 G DOSES
     Route: 048
     Dates: start: 20210104, end: 20210107
  12. CEFOPERAZONE\SULBACTAM [Concomitant]
     Active Substance: CEFOPERAZONE\SULBACTAM
     Indication: Anti-infective therapy
     Dosage: UNK
     Dates: start: 20201218, end: 20201225
  13. LEVOFLOXACIN [Concomitant]
     Active Substance: LEVOFLOXACIN
     Indication: Anti-infective therapy
     Dosage: UNK
     Dates: start: 20201218, end: 20201225

REACTIONS (1)
  - Drug ineffective [Fatal]
